FAERS Safety Report 10077655 (Version 2)
Quarter: 2014Q2

REPORT INFORMATION
  Report Type: Spontaneous
  Country: US (occurrence: US)
  Receive Date: 20140414
  Receipt Date: 20140414
  Transmission Date: 20141212
  Serious: No
  Sender: FDA-Public Use
  Company Number: US-BANPHARM-20142070

PATIENT
  Age: 67 Year
  Sex: Female
  Weight: 55.79 kg

DRUGS (1)
  1. ALEVE LIQUID GELS 220 MG [Suspect]
     Indication: NASOPHARYNGITIS
     Dosage: 1 DF, ONCE,
     Route: 048
     Dates: start: 20140121, end: 20140121

REACTIONS (5)
  - Malaise [Recovered/Resolved]
  - Arthralgia [Recovered/Resolved]
  - Pyrexia [Recovered/Resolved]
  - Chills [Recovered/Resolved]
  - Hyperhidrosis [Recovered/Resolved]
